FAERS Safety Report 15167786 (Version 1)
Quarter: 2018Q3

REPORT INFORMATION
  Report Type: Report from Study
  Country: ES (occurrence: ES)
  Receive Date: 20180719
  Receipt Date: 20180719
  Transmission Date: 20181010
  Serious: Yes (Hospitalization)
  Sender: FDA-Public Use
  Company Number: ES-TEVA-2018-ES-928890

PATIENT
  Age: 87 Year
  Sex: Male

DRUGS (5)
  1. SINTROM [Interacting]
     Active Substance: ACENOCOUMAROL
     Indication: ATRIAL FIBRILLATION
     Route: 048
     Dates: start: 201011
  2. NITROPLAST 5 PARCHES TRANSDERMICOS , 30 PARCHES [Concomitant]
     Dosage: 5 MILLIGRAM DAILY;
     Route: 062
     Dates: start: 201306
  3. OMEPRAZOL (2141A) [Concomitant]
     Active Substance: OMEPRAZOLE
     Indication: PROPHYLAXIS AGAINST GASTROINTESTINAL ULCER
     Dosage: 20 MILLIGRAM DAILY;
     Route: 048
     Dates: start: 201507
  4. FINASTERIDA (2624A) [Concomitant]
     Indication: BENIGN PROSTATIC HYPERPLASIA
     Dosage: 5 MILLIGRAM DAILY;
     Route: 048
     Dates: start: 20151126
  5. ATORVASTATINA (7400A) [Suspect]
     Active Substance: ATORVASTATIN
     Indication: HYPERLIPIDAEMIA
     Dosage: 20 MILLIGRAM DAILY;
     Route: 048
     Dates: start: 2015

REACTIONS (2)
  - Drug interaction [Unknown]
  - Oesophageal adenocarcinoma stage 0 [Recovered/Resolved]

NARRATIVE: CASE EVENT DATE: 2016
